FAERS Safety Report 9518859 (Version 2)
Quarter: 2013Q4

REPORT INFORMATION
  Report Type: Spontaneous
  Country: US (occurrence: None)
  Receive Date: 20130910
  Receipt Date: 20131024
  Transmission Date: 20140711
  Serious: Yes (Other)
  Sender: FDA-Public Use
  Company Number: ACO_37296_2013

PATIENT
  Sex: Female

DRUGS (9)
  1. AMPYRA (DALFAMPRIDINE) TABLET, 10MG [Suspect]
     Indication: PRODUCT USED FOR UNKNOWN INDICATION
     Route: 048
     Dates: start: 201009
  2. TECFIDERA [Suspect]
     Dates: start: 201306, end: 201308
  3. OXYBUTYNIN (OXYBUTYNIN HYDROCHLORIDE) [Concomitant]
  4. DIAZEPAM (DIAZEPAM) [Concomitant]
  5. NAPROXEN (NAPROXEN SODIUM) [Concomitant]
  6. SUMATRIPTAN (SUMATRIPTAN) [Concomitant]
  7. PROCTOZONE H (HYDROCORTISONE) [Concomitant]
  8. ALENDRONATE SODIUM (ALENDRONATE SODIUM) (ALENDRONATE SODIUM) [Concomitant]
  9. HYDROCODONE/ACETAMINOPHEN (HYDROCODONE BITARTRATE, PARACETAMOL) [Concomitant]

REACTIONS (5)
  - Vaginal haemorrhage [None]
  - Heart rate increased [None]
  - Pyrexia [None]
  - Flushing [None]
  - Medication error [None]
